FAERS Safety Report 14778182 (Version 1)
Quarter: 2018Q2

REPORT INFORMATION
  Report Type: Report from Study
  Country: AT (occurrence: AT)
  Receive Date: 20180419
  Receipt Date: 20180419
  Transmission Date: 20180711
  Serious: Yes (Other)
  Sender: FDA-Public Use
  Company Number: PHHY2018AT068264

PATIENT

DRUGS (2)
  1. RYDAPT [Suspect]
     Active Substance: MIDOSTAURIN
     Indication: ACUTE MYELOID LEUKAEMIA
     Dosage: UNK
     Route: 048
  2. RYDAPT [Suspect]
     Active Substance: MIDOSTAURIN
     Dosage: DOSE REDUCED
     Route: 048

REACTIONS (3)
  - Hepatotoxicity [Unknown]
  - Vomiting [Unknown]
  - Drug ineffective [Unknown]
